FAERS Safety Report 6779562-5 (Version None)
Quarter: 2010Q2

REPORT INFORMATION
  Report Type: 
  Country: None (occurrence: None)
  Receive Date: 20100618
  Receipt Date: 20100615
  Transmission Date: 20101027
  Serious: Yes (Hospitalization)
  Sender: FDA-Public Use
  Company Number: A0802625A

PATIENT
  Age: 51 Year
  Sex: Female
  Weight: 221.8 kg

DRUGS (2)
  1. AVANDIA [Suspect]
     Indication: DIABETES MELLITUS
     Dosage: 4MG TWICE PER DAY
     Route: 048
     Dates: start: 20020425, end: 20061213
  2. AVANDAMET [Suspect]
     Dosage: 4MG TWICE PER DAY
     Route: 065
     Dates: start: 20040412, end: 20070727

REACTIONS (10)
  - ATRIAL FIBRILLATION [None]
  - CARDIAC DISORDER [None]
  - CARDIAC FAILURE CONGESTIVE [None]
  - CARDIOVASCULAR DISORDER [None]
  - COR PULMONALE [None]
  - HAEMATOMA [None]
  - INJURY [None]
  - OEDEMA [None]
  - PULMONARY HYPERTENSION [None]
  - SLEEP APNOEA SYNDROME [None]
